FAERS Safety Report 12519140 (Version 1)
Quarter: 2016Q2

REPORT INFORMATION
  Report Type: Report from Study
  Country: PR (occurrence: PR)
  Receive Date: 20160630
  Receipt Date: 20160630
  Transmission Date: 20160815
  Serious: Yes (Hospitalization)
  Sender: FDA-Public Use
  Company Number: PR-ABBVIE-16K-131-1656908-00

PATIENT
  Age: 19 Year
  Sex: Female
  Weight: 56.75 kg

DRUGS (7)
  1. HUMIRA [Suspect]
     Active Substance: ADALIMUMAB
     Indication: CROHN^S DISEASE
     Dosage: LOADING DOSE
     Route: 058
     Dates: start: 20160512, end: 20160512
  2. VERAPAMIL [Concomitant]
     Active Substance: VERAPAMIL HYDROCHLORIDE
     Indication: ARRHYTHMIA
     Route: 048
     Dates: start: 2015
  3. HUMIRA [Suspect]
     Active Substance: ADALIMUMAB
     Route: 058
     Dates: start: 20160620
  4. IMURAN [Concomitant]
     Active Substance: AZATHIOPRINE
     Indication: PRODUCT USED FOR UNKNOWN INDICATION
     Route: 048
  5. HUMIRA [Suspect]
     Active Substance: ADALIMUMAB
     Indication: CROHN^S DISEASE
     Dosage: SECOND DOSE
     Route: 058
     Dates: start: 201606, end: 201606
  6. ISORDIL [Concomitant]
     Active Substance: ISOSORBIDE DINITRATE
     Indication: ARRHYTHMIA
     Route: 048
     Dates: start: 2015
  7. ZANTAC [Concomitant]
     Active Substance: RANITIDINE HYDROCHLORIDE
     Indication: PRODUCT USED FOR UNKNOWN INDICATION
     Route: 048

REACTIONS (12)
  - Gastrointestinal inflammation [Not Recovered/Not Resolved]
  - Intestinal fistula [Not Recovered/Not Resolved]
  - Nausea [Recovered/Resolved]
  - Gastrointestinal inflammation [Recovering/Resolving]
  - Intestinal obstruction [Not Recovered/Not Resolved]
  - Faecaloma [Not Recovered/Not Resolved]
  - Fatigue [Recovered/Resolved]
  - Nausea [Recovering/Resolving]
  - Anal fistula [Unknown]
  - Dizziness [Recovered/Resolved]
  - Muscle spasms [Recovered/Resolved]
  - Dizziness [Not Recovered/Not Resolved]

NARRATIVE: CASE EVENT DATE: 2016
